FAERS Safety Report 7524609-1 (Version None)
Quarter: 2011Q2

REPORT INFORMATION
  Report Type: 
  Country: None (occurrence: None)
  Receive Date: 20110606
  Receipt Date: 20110530
  Transmission Date: 20111010
  Serious: Yes (Hospitalization)
  Sender: FDA-Public Use
  Company Number: US-JNJFOC-20110504424

PATIENT
  Sex: Female

DRUGS (8)
  1. FENTANYL CITRATE [Suspect]
     Indication: ARTHRALGIA
     Route: 062
     Dates: start: 20110301, end: 20110401
  2. PREDNISONE [Concomitant]
     Indication: INFLAMMATION
     Route: 048
  3. FENTANYL-100 [Suspect]
     Indication: ARTHRALGIA
     Route: 062
     Dates: start: 20060101, end: 20110301
  4. FENTANYL-100 [Suspect]
     Indication: ARTHRALGIA
     Route: 062
     Dates: start: 20110401
  5. FENTANYL-100 [Suspect]
     Indication: BACK PAIN
     Route: 062
     Dates: start: 20060101, end: 20110301
  6. FENTANYL-100 [Suspect]
     Indication: BACK PAIN
     Route: 062
     Dates: start: 20110401
  7. SYNTHROID [Concomitant]
     Indication: THYROID DISORDER
     Route: 048
  8. FENTANYL CITRATE [Suspect]
     Indication: BACK PAIN
     Route: 062
     Dates: start: 20110301, end: 20110401

REACTIONS (12)
  - SLUGGISHNESS [None]
  - HYPERHIDROSIS [None]
  - BLOOD POTASSIUM DECREASED [None]
  - KIDNEY INFECTION [None]
  - ABDOMINAL PAIN UPPER [None]
  - ORAL HERPES [None]
  - PYREXIA [None]
  - HYPERTENSION [None]
  - BACK PAIN [None]
  - DYSPNOEA [None]
  - MALAISE [None]
  - WEIGHT DECREASED [None]
